FAERS Safety Report 8985675 (Version 1)
Quarter: 2012Q4

REPORT INFORMATION
  Report Type: 
  Country: US (occurrence: US)
  Receive Date: 20121226
  Receipt Date: 20121226
  Transmission Date: 20130627
  Serious: No
  Sender: FDA-Public Use
  Company Number: US-TEVA-377127USA

PATIENT
  Age: 79 Year
  Sex: Female

DRUGS (1)
  1. PROAIR HFA [Suspect]
     Indication: WHEEZING
     Dosage: 2  puffs
     Dates: start: 20121217, end: 20121217

REACTIONS (1)
  - Flatulence [Recovering/Resolving]
